FAERS Safety Report 9538662 (Version 1)
Quarter: 2013Q2

REPORT INFORMATION
  Report Type: Spontaneous
  Country: US (occurrence: None)
  Receive Date: 20130517
  Receipt Date: 20130517
  Transmission Date: 20140414
  Serious: No
  Sender: FDA-Public Use
  Company Number: 1000043405

PATIENT
  Age: 77 Year
  Sex: Female

DRUGS (10)
  1. VIIBRYD (VILAZODONE HYDROCHLORIDE) (40 MILLIGRAM, TABLETS) [Suspect]
     Indication: ANXIETY
     Route: 048
     Dates: start: 20120926, end: 201210
  2. VIIBRYD [Suspect]
     Indication: ANXIETY
     Route: 048
     Dates: start: 20121101, end: 20121103
  3. ALPRAZOLAM (ALPRAZOLAM( (ALPRAZOLAM) [Concomitant]
  4. SPIRONOLACTONE (SPIRONOLACTONE) (SPIRONOLACTONE) [Concomitant]
  5. METOPROLOL (METOPROLOL( (METOPROLOL) [Concomitant]
  6. LEVOTHYROXINE (LEVOTHYROXINE SODIUM( (LEVOTHYROXINE SODIUM0 [Concomitant]
  7. AGGRENOX (ASASANTIN( (ASASANTIN) [Concomitant]
  8. MIRTAZAPINE (MIRTAZAPINE) (MIRTAZAPINE) [Concomitant]
  9. CRESTOR (ROSUVASTATIN CALCIUM( (ROSUVASTATIN CALCIUM0 [Concomitant]
  10. TEMAZEPAM (TEMAZEPAM( (TEMAZEPAM) [Concomitant]

REACTIONS (9)
  - Abdominal pain [None]
  - Diarrhoea [None]
  - Decreased appetite [None]
  - Weight decreased [None]
  - Anxiety [None]
  - Dizziness [None]
  - Chills [None]
  - Feeling cold [None]
  - Off label use [None]
